FAERS Safety Report 7723907-6 (Version None)
Quarter: 2011Q3

REPORT INFORMATION
  Report Type: 
  Country: None (occurrence: None)
  Receive Date: 20110901
  Receipt Date: 20110822
  Transmission Date: 20111222
  Serious: Yes (Hospitalization)
  Sender: FDA-Public Use
  Company Number: US-ACTELION-A-US2011-53099

PATIENT

DRUGS (3)
  1. COUMADIN [Concomitant]
  2. CALCIUM CHANNEL BLOCKERS [Concomitant]
  3. TRACLEER [Suspect]
     Indication: PULMONARY ARTERIAL HYPERTENSION
     Dosage: UNK
     Route: 048
     Dates: start: 20090715

REACTIONS (6)
  - INCONTINENCE [None]
  - EMBOLISM [None]
  - SINUS CONGESTION [None]
  - PULMONARY ARTERIAL HYPERTENSION [None]
  - SLEEP APNOEA SYNDROME [None]
  - RENAL DISORDER [None]
